FAERS Safety Report 9532048 (Version 2)
Quarter: 2013Q3

REPORT INFORMATION
  Report Type: Spontaneous
  Country: JP (occurrence: JP)
  Receive Date: 20130918
  Receipt Date: 20130918
  Transmission Date: 20140515
  Serious: Yes (Other)
  Sender: FDA-Public Use
  Company Number: PHHY2013JP092191

PATIENT
  Age: 75 Year
  Sex: Male

DRUGS (2)
  1. TASIGNA [Suspect]
     Indication: CHRONIC MYELOID LEUKAEMIA
     Dosage: 600 MG, DAILY
     Route: 048
     Dates: start: 201307
  2. GLIVEC [Concomitant]
     Indication: CHRONIC MYELOID LEUKAEMIA
     Dosage: 400 MG
     Dates: start: 2009, end: 201202

REACTIONS (5)
  - Supraventricular extrasystoles [Recovering/Resolving]
  - Dizziness [Recovering/Resolving]
  - Vertigo [Recovering/Resolving]
  - Weight decreased [Recovered/Resolved]
  - Blood pressure decreased [Recovering/Resolving]
